FAERS Safety Report 24265896 (Version 1)
Quarter: 2024Q3

REPORT INFORMATION
  Report Type: Spontaneous
  Country: US (occurrence: None)
  Receive Date: 20240830
  Receipt Date: 20240830
  Transmission Date: 20241016
  Serious: Yes (Other)
  Sender: AXSOME THERAPEUTICS
  Company Number: US-ARIS GLOBAL-AXS202407-001026

PATIENT
  Sex: Male

DRUGS (3)
  1. AUVELITY [Suspect]
     Active Substance: BUPROPION HYDROCHLORIDE\DEXTROMETHORPHAN HYDROBROMIDE
     Indication: Product used for unknown indication
     Route: 048
  2. AUVELITY [Suspect]
     Active Substance: BUPROPION HYDROCHLORIDE\DEXTROMETHORPHAN HYDROBROMIDE
     Route: 048
  3. AUVELITY [Suspect]
     Active Substance: BUPROPION HYDROCHLORIDE\DEXTROMETHORPHAN HYDROBROMIDE
     Dosage: ALTERNATING QD AND BID DOSING EVERY OTHER DAY.
     Route: 048

REACTIONS (5)
  - Hallucination, visual [Unknown]
  - Confusional state [Unknown]
  - Depression [Unknown]
  - Symptom recurrence [Unknown]
  - Off label use [Unknown]
